FAERS Safety Report 8776363 (Version 2)
Quarter: 2012Q4

REPORT INFORMATION
  Report Type: 
  Country: US (occurrence: US)
  Receive Date: 20120910
  Receipt Date: 20120920
  Transmission Date: 20130627
  Serious: Yes (Other)
  Sender: FDA-Public Use
  Company Number: US-PFIZER INC-2012221126

PATIENT
  Age: 55 Year
  Sex: Female
  Weight: 68.03 kg

DRUGS (2)
  1. EFFEXOR XR [Suspect]
     Indication: DEPRESSION
     Dosage: 75 mg, daily
     Dates: end: 201208
  2. VENLAFAXINE HYDROCHLORIDE [Suspect]
     Indication: DEPRESSION
     Dosage: UNK

REACTIONS (5)
  - Poor quality drug administered [Unknown]
  - Product quality issue [Unknown]
  - Transient ischaemic attack [Unknown]
  - Vision blurred [Recovering/Resolving]
  - Product tampering [Unknown]
